FAERS Safety Report 7874579-1 (Version None)
Quarter: 2011Q4

REPORT INFORMATION
  Report Type: 
  Country: None (occurrence: None)
  Receive Date: 20111031
  Receipt Date: 20111026
  Transmission Date: 20120403
  Serious: Yes (Hospitalization)
  Sender: FDA-Public Use
  Company Number: FR-PFIZER INC-2011260375

PATIENT
  Age: 74 Year
  Sex: Female

DRUGS (5)
  1. DIAMICRON [Concomitant]
     Indication: DIABETES MELLITUS
     Dosage: 30 MG, 2X/DAY
     Dates: end: 20110912
  2. ATORVASTATIN CALCIUM [Suspect]
     Indication: HYPERTENSION
     Dosage: 20 MG, 1X/DAY
     Route: 048
     Dates: end: 20110907
  3. GLEEVEC [Suspect]
     Indication: CHRONIC LYMPHOCYTIC LEUKAEMIA
     Dosage: 400 MG, 1X/DAY
     Route: 048
     Dates: start: 20110203, end: 20110630
  4. LORAZEPAM [Concomitant]
     Dosage: 1 MG, 1X/DAY
     Route: 048
  5. IRBESARTAN [Suspect]
     Indication: HYPERCHOLESTEROLAEMIA
     Dosage: 300 MG, 1X/DAY
     Route: 048

REACTIONS (4)
  - CYTOLYTIC HEPATITIS [None]
  - PROTHROMBIN TIME RATIO DECREASED [None]
  - ASPARTATE AMINOTRANSFERASE INCREASED [None]
  - ALANINE AMINOTRANSFERASE INCREASED [None]
